FAERS Safety Report 5600870-5 (Version None)
Quarter: 2008Q1

REPORT INFORMATION
  Report Type: 
  Country: None (occurrence: None)
  Receive Date: 20080122
  Receipt Date: 20080122
  Transmission Date: 20080703
  Serious: Yes (Other)
  Sender: FDA-Public Use
  Company Number: None

PATIENT
  Age: 47 Year
  Sex: Male
  Weight: 87.5896 kg

DRUGS (1)
  1. GENERIC TYLENOL #4 [Suspect]
     Indication: MUSCULOSKELETAL PAIN
     Dosage: 1-2 TABS EVERY 4-6 HOURS AS NEEDED ABOUT A YEAR AGO

REACTIONS (3)
  - DRUG INEFFECTIVE [None]
  - INADEQUATE ANALGESIA [None]
  - STOMACH DISCOMFORT [None]
